FAERS Safety Report 4528757-X (Version None)
Quarter: 2004Q4

REPORT INFORMATION
  Report Type: 
  Country: None (occurrence: None)
  Receive Date: 20041216
  Receipt Date: 20040901
  Transmission Date: 20050328
  Serious: Yes (Death, Hospitalization)
  Sender: FDA-Public Use
  Company Number: CH-ROCHE-379163

PATIENT
  Age: 64 Year
  Sex: Male

DRUGS (4)
  1. CAPECITABINE [Suspect]
     Dosage: INTERMITTENT TREATMENT - TWO WEEKS OF TREATMENT FOLLOWED BY ONE WEEK REST.
     Route: 048
     Dates: start: 20040828
  2. GEMCITABINE [Suspect]
     Dosage: INTERMITTENT THERAPY - TWO WEEKS TREATMENT FOLLOWED BY ONE WEEK REST.  DOSE GIVEN EQUATES TO 2100MG.
     Route: 042
     Dates: start: 20040828
  3. MARCOUMAR [Concomitant]
     Indication: PULMONARY EMBOLISM
     Dosage: PRN.
     Route: 048
     Dates: start: 20040826, end: 20040827
  4. LIQUAEMIN INJ [Concomitant]
     Indication: PULMONARY EMBOLISM
     Dosage: 35000 UNIT DOSING GIVEN 26-28 AUGUST, 2004, 15000 UNIT DOSE GIVEN 31 AUGUST, 2004.
     Route: 042
     Dates: start: 20040826, end: 20040831

REACTIONS (4)
  - ATRIAL FIBRILLATION [None]
  - CARDIAC FAILURE [None]
  - MALIGNANT NEOPLASM PROGRESSION [None]
  - RENAL FAILURE ACUTE [None]
